FAERS Safety Report 22259847 (Version 1)
Quarter: 2023Q2

REPORT INFORMATION
  Report Type: Spontaneous
  Country: None (occurrence: DK)
  Receive Date: 20230427
  Receipt Date: 20230427
  Transmission Date: 20230721
  Serious: Yes (Other)
  Sender: FDA-Public Use
  Company Number: DK-B.Braun Medical Inc.-2140842

PATIENT
  Age: 34 Year
  Sex: Female

DRUGS (2)
  1. METRONIDAZOLE [Suspect]
     Active Substance: METRONIDAZOLE
     Indication: Pelvic inflammatory disease
     Route: 042
  2. DOXYCYCLINE [Concomitant]
     Active Substance: DOXYCYCLINE

REACTIONS (8)
  - Fatigue [Recovering/Resolving]
  - Burning sensation [Recovered/Resolved]
  - Erythema [Recovered/Resolved]
  - Myalgia [Recovering/Resolving]
  - Paraesthesia [Recovered/Resolved]
  - Muscle twitching [Unknown]
  - Neuropathy peripheral [Recovering/Resolving]
  - Visual impairment [Unknown]
